FAERS Safety Report 5112708-3 (Version None)
Quarter: 2006Q3

REPORT INFORMATION
  Report Type: 
  Country: None (occurrence: None)
  Receive Date: 20060922
  Receipt Date: 20060828
  Transmission Date: 20061208
  Serious: No
  Sender: FDA-Public Use
  Company Number: SE-GLAXOSMITHKLINE-B0436724A

PATIENT
  Sex: Female
  Weight: 3.5 kg

DRUGS (1)
  1. BUPROPION HCL [Suspect]

REACTIONS (1)
  - DRUG EXPOSURE DURING PREGNANCY [None]
